FAERS Safety Report 7521758-9 (Version None)
Quarter: 2011Q2

REPORT INFORMATION
  Report Type: 
  Country: None (occurrence: None)
  Receive Date: 20110603
  Receipt Date: 20110520
  Transmission Date: 20111010
  Serious: Yes (Hospitalization)
  Sender: FDA-Public Use
  Company Number: PHHY2011AU16961

PATIENT
  Sex: Female

DRUGS (2)
  1. CLOZARIL [Suspect]
     Indication: SCHIZOPHRENIA
     Dosage: 150 MG,
     Dates: start: 20090114
  2. SERTRALINE HYDROCHLORIDE [Concomitant]
     Dosage: 200 MG DAILY
     Route: 048

REACTIONS (1)
  - HIP FRACTURE [None]
